FAERS Safety Report 9432340 (Version 2)
Quarter: 2013Q3

REPORT INFORMATION
  Report Type: Spontaneous
  Country: US (occurrence: US)
  Receive Date: 20130731
  Receipt Date: 20130820
  Transmission Date: 20140515
  Serious: No
  Sender: FDA-Public Use
  Company Number: US-JNJFOC-20130711438

PATIENT
  Sex: Male
  Weight: 65.77 kg

DRUGS (16)
  1. DURAGESIC [Suspect]
     Indication: NEURALGIA
     Route: 062
  2. ATENOLOL [Concomitant]
     Indication: HYPERTENSION
     Route: 048
  3. AMLODIPINE BESYLATE [Concomitant]
     Indication: HYPERTENSION
     Route: 065
  4. BUPROPION HCL [Concomitant]
     Indication: DEPRESSION
     Route: 048
     Dates: start: 2011
  5. BUPROPION HCL [Concomitant]
     Indication: DEPRESSION
     Route: 048
     Dates: start: 2011
  6. SERTRALINE HCL [Concomitant]
     Indication: DEPRESSION
     Route: 048
     Dates: start: 2013
  7. ASPIRIN [Concomitant]
     Indication: CARDIAC DISORDER
     Route: 048
  8. MULTIPLE VITAMIN [Concomitant]
     Indication: NUTRITIONAL SUPPLEMENTATION
     Route: 065
  9. VITAMIN C [Concomitant]
     Indication: NUTRITIONAL SUPPLEMENTATION
     Route: 048
  10. OMEGA 3 [Concomitant]
     Indication: NUTRITIONAL SUPPLEMENTATION
     Route: 048
     Dates: start: 2011
  11. CALCIUM [Concomitant]
     Indication: NUTRITIONAL SUPPLEMENTATION
     Route: 048
  12. VITAMIN D [Concomitant]
     Indication: NUTRITIONAL SUPPLEMENTATION
     Route: 048
  13. VITAMIN B [Concomitant]
     Indication: NUTRITIONAL SUPPLEMENTATION
     Route: 048
  14. BENEFIBER [Concomitant]
     Indication: CONSTIPATION
     Route: 048
  15. STOOL SOFTENER [Concomitant]
     Indication: CONSTIPATION
     Route: 048
  16. DURAGESIC [Suspect]
     Indication: NEURALGIA
     Route: 062

REACTIONS (11)
  - Fall [Recovered/Resolved]
  - Presyncope [Recovered/Resolved]
  - Withdrawal syndrome [Recovered/Resolved]
  - Drug ineffective [Recovered/Resolved]
  - Product quality issue [Not Recovered/Not Resolved]
  - Wrong technique in drug usage process [Recovered/Resolved]
  - Dizziness [Recovered/Resolved]
  - Product quality issue [Unknown]
  - Constipation [Unknown]
  - Overdose [Recovered/Resolved]
  - Hyperhidrosis [Recovered/Resolved]
